FAERS Safety Report 4644764-0 (Version None)
Quarter: 2005Q2

REPORT INFORMATION
  Report Type: 
  Country: None (occurrence: None)
  Receive Date: 20050426
  Receipt Date: 20050413
  Transmission Date: 20051028
  Serious: Yes (Hospitalization)
  Sender: FDA-Public Use
  Company Number: CA-BRISTOL-MYERS SQUIBB COMPANY-12944609

PATIENT
  Age: 52 Year
  Sex: Female

DRUGS (4)
  1. BUSPAR [Suspect]
     Indication: PANIC ATTACK
     Route: 048
     Dates: start: 20010101, end: 20050101
  2. CELEXA [Concomitant]
  3. AVELOX [Concomitant]
  4. WELLBUTRIN [Concomitant]
     Dates: start: 20040101, end: 20040101

REACTIONS (1)
  - ASTHMA [None]
